FAERS Safety Report 17027052 (Version 1)
Quarter: 2019Q4

REPORT INFORMATION
  Report Type: Spontaneous
  Country: CA (occurrence: CA)
  Receive Date: 20191113
  Receipt Date: 20191113
  Transmission Date: 20200122
  Serious: Yes (Life-Threatening, Disabling)
  Sender: FDA-Public Use
  Company Number: CA-PFIZER INC-2019487175

PATIENT
  Age: 48 Year
  Sex: Male
  Weight: 61 kg

DRUGS (8)
  1. MAVIK [Concomitant]
     Active Substance: TRANDOLAPRIL
     Dosage: UNK
     Route: 065
  2. FRAGMIN [Concomitant]
     Active Substance: DALTEPARIN SODIUM
     Dosage: UNK
     Route: 065
  3. AVASTIN [ATORVASTATIN CALCIUM] [Suspect]
     Active Substance: ATORVASTATIN CALCIUM
     Indication: COLORECTAL CANCER METASTATIC
     Dosage: 5 MG/KG, 1 EVERY 2 WEEKS
     Route: 042
  4. LEUCOVORIN [FOLINIC ACID] [Concomitant]
     Active Substance: LEUCOVORIN
     Dosage: UNK
  5. IRINOTECAN HCL [Suspect]
     Active Substance: IRINOTECAN HYDROCHLORIDE
     Dosage: UNK
     Route: 065
  6. FLUOROURACIL. [Concomitant]
     Active Substance: FLUOROURACIL
     Dosage: UNK
  7. HYDROMORPH CONTIN [Concomitant]
     Active Substance: HYDROMORPHONE
     Dosage: UNK
     Route: 065
  8. ZOPICLONE [Concomitant]
     Active Substance: ZOPICLONE
     Dosage: UNK
     Route: 065

REACTIONS (5)
  - Hemiplegia [Not Recovered/Not Resolved]
  - Reading disorder [Not Recovered/Not Resolved]
  - Dysgraphia [Not Recovered/Not Resolved]
  - Memory impairment [Not Recovered/Not Resolved]
  - Cognitive disorder [Not Recovered/Not Resolved]
